FAERS Safety Report 5293463-3 (Version None)
Quarter: 2007Q2

REPORT INFORMATION
  Report Type: 
  Country: None (occurrence: None)
  Receive Date: 20070411
  Receipt Date: 20070330
  Transmission Date: 20071010
  Serious: Yes (Death)
  Sender: FDA-Public Use
  Company Number: US-SANOFI-SYNTHELABO-A03200702513

PATIENT
  Sex: Female

DRUGS (9)
  1. DARVOCET [Concomitant]
     Dosage: UNK
     Route: 048
  2. ZOCOR [Concomitant]
     Dosage: UNK
     Route: 048
  3. XANAX [Concomitant]
     Dosage: UNK
     Route: 048
  4. NITROSTAT [Concomitant]
     Dosage: UNK
     Route: 060
  5. LASIX [Concomitant]
     Dosage: UNK
     Route: 048
  6. SYNTHROID [Concomitant]
     Dosage: UNK
     Route: 048
  7. ALTACE [Concomitant]
     Dosage: UNK
     Route: 048
  8. COREG [Concomitant]
     Dosage: UNK
     Route: 048
  9. PLAVIX [Suspect]
     Indication: DRUG USE FOR UNKNOWN INDICATION
     Route: 048

REACTIONS (1)
  - DEATH [None]
